FAERS Safety Report 12199702 (Version 1)
Quarter: 2016Q1

REPORT INFORMATION
  Report Type: Spontaneous
  Country: SE (occurrence: SE)
  Receive Date: 20160322
  Receipt Date: 20160322
  Transmission Date: 20160526
  Serious: Yes (Other)
  Sender: FDA-Public Use
  Company Number: SE-PFIZER INC-2016120831

PATIENT
  Age: 62 Year
  Sex: Female
  Weight: 71 kg

DRUGS (6)
  1. CHAMPIX [Suspect]
     Active Substance: VARENICLINE TARTRATE
     Dosage: 0.5 MG, DAILY
     Route: 048
     Dates: start: 20160118, end: 20160124
  2. CHAMPIX [Suspect]
     Active Substance: VARENICLINE TARTRATE
     Indication: SMOKING CESSATION THERAPY
     Dosage: 0.5 MG, DAILY
     Route: 048
     Dates: start: 20151130, end: 20151206
  3. IMUREL /00001501/ [Concomitant]
     Active Substance: AZATHIOPRINE SODIUM
     Dosage: 50 MG, 3X/DAY
  4. ZANTAC [Concomitant]
     Active Substance: RANITIDINE HYDROCHLORIDE
     Dosage: 25 MG, 1X/DAY
  5. CHAMPIX [Suspect]
     Active Substance: VARENICLINE TARTRATE
     Dosage: 1 MG, 2X/DAY
     Route: 048
     Dates: start: 20151207, end: 20151227
  6. CHAMPIX [Suspect]
     Active Substance: VARENICLINE TARTRATE
     Dosage: 1 MG, 2X/DAY
     Route: 048
     Dates: start: 20160125, end: 20160224

REACTIONS (4)
  - Memory impairment [Recovering/Resolving]
  - Amnesia [Unknown]
  - Crohn^s disease [Not Recovered/Not Resolved]
  - Insomnia [Recovering/Resolving]

NARRATIVE: CASE EVENT DATE: 20151208
